FAERS Safety Report 9282786 (Version 1)
Quarter: 2013Q2

REPORT INFORMATION
  Report Type: Report from Study
  Country: AR (occurrence: AR)
  Receive Date: 20130510
  Receipt Date: 20130510
  Transmission Date: 20140414
  Serious: Yes (Other)
  Sender: FDA-Public Use
  Company Number: PHHY2013AR044191

PATIENT
  Age: 85 Year
  Sex: Female

DRUGS (1)
  1. EXELON PATCH [Suspect]
     Indication: GASTRITIS
     Dosage: 1 DF, DAILY
     Route: 062

REACTIONS (8)
  - Panic attack [Recovering/Resolving]
  - Disorientation [Recovering/Resolving]
  - Arthralgia [Recovering/Resolving]
  - Dysphemia [Unknown]
  - Skin discolouration [Unknown]
  - Feeling abnormal [Unknown]
  - Gait disturbance [Unknown]
  - Malaise [Recovering/Resolving]
